FAERS Safety Report 13941212 (Version 3)
Quarter: 2018Q3

REPORT INFORMATION
  Report Type: Spontaneous
  Country: US (occurrence: US)
  Receive Date: 20170906
  Receipt Date: 20180705
  Transmission Date: 20181010
  Serious: Yes (Hospitalization)
  Sender: FDA-Public Use
  Company Number: US-DSJP-DSU-2017-135093

PATIENT

DRUGS (1)
  1. BENICAR HCT [Suspect]
     Active Substance: HYDROCHLOROTHIAZIDE\OLMESARTAN MEDOXOMIL
     Indication: PRODUCT USED FOR UNKNOWN INDICATION
     Dosage: 20?12.5 MG, QD
     Route: 048
     Dates: start: 20060126, end: 20140101

REACTIONS (8)
  - Duodenal stenosis [Recovering/Resolving]
  - Haemorrhoids [Unknown]
  - Weight decreased [Unknown]
  - Umbilical hernia [Recovered/Resolved]
  - Diarrhoea [Recovered/Resolved]
  - Cholecystitis acute [Recovered/Resolved]
  - Gastrooesophageal reflux disease [Unknown]
  - Ampulla of Vater stenosis [Unknown]

NARRATIVE: CASE EVENT DATE: 20070226
